FAERS Safety Report 13362392 (Version 1)
Quarter: 2017Q1

REPORT INFORMATION
  Report Type: Spontaneous
  Country: US (occurrence: US)
  Receive Date: 20170322
  Receipt Date: 20170322
  Transmission Date: 20170429
  Serious: Yes (Death)
  Sender: FDA-Public Use
  Company Number: None

PATIENT
  Age: 62 Year
  Sex: Female
  Weight: 67 kg

DRUGS (1)
  1. DABIGATRAN [Suspect]
     Active Substance: DABIGATRAN
     Indication: ATRIAL FIBRILLATION
     Route: 048

REACTIONS (11)
  - Bowel movement irregularity [None]
  - Activated partial thromboplastin time prolonged [None]
  - Acute kidney injury [None]
  - Dizziness [None]
  - Acute respiratory failure [None]
  - Haematocrit decreased [None]
  - Drug level increased [None]
  - Haemoglobin decreased [None]
  - Infrequent bowel movements [None]
  - Mental status changes [None]
  - International normalised ratio increased [None]

NARRATIVE: CASE EVENT DATE: 20161116
